FAERS Safety Report 9025103 (Version 1)
Quarter: 2013Q1

REPORT INFORMATION
  Report Type: Spontaneous
  Country: US (occurrence: US)
  Receive Date: 20130121
  Receipt Date: 20130121
  Transmission Date: 20140127
  Serious: Yes (Death)
  Sender: FDA-Public Use
  Company Number: US-JNJFOC-20130106377

PATIENT
  Age: 47 Year
  Sex: Male

DRUGS (4)
  1. ACETAMINOPHEN [Suspect]
     Route: 055
  2. ACETAMINOPHEN [Suspect]
     Indication: SUICIDE ATTEMPT
     Route: 055
  3. ACETAMINOPHEN/DEXTROMETHORPHAN/DOXALAMINE [Suspect]
     Indication: SUICIDE ATTEMPT
     Route: 055
  4. CARBON MONOXIDE [Suspect]
     Indication: SUICIDE ATTEMPT
     Route: 055

REACTIONS (3)
  - Toxicity to various agents [Fatal]
  - Incorrect route of drug administration [Fatal]
  - Completed suicide [None]
